FAERS Safety Report 12071391 (Version 3)
Quarter: 2016Q2

REPORT INFORMATION
  Report Type: Report from Study
  Country: DE (occurrence: DE)
  Receive Date: 20160211
  Receipt Date: 20160405
  Transmission Date: 20160815
  Serious: Yes (Hospitalization, Other)
  Sender: FDA-Public Use
  Company Number: DE-BIOGEN-2015BI102808

PATIENT
  Age: 52 Year
  Sex: Female
  Weight: 92 kg

DRUGS (18)
  1. TYSABRI [Suspect]
     Active Substance: NATALIZUMAB
     Indication: MULTIPLE SCLEROSIS
     Route: 042
     Dates: start: 20150622, end: 20150723
  2. BELOC ZOK (METOPROLOL SUCCINATE) [Concomitant]
     Active Substance: METOPROLOL SUCCINATE
  3. SIMVASTATIN. [Concomitant]
     Active Substance: SIMVASTATIN
     Indication: HYPERCHOLESTEROLAEMIA
     Dates: start: 2006
  4. VIGANTOLETTEN [Concomitant]
     Active Substance: CHOLECALCIFEROL
     Indication: HYPOVITAMINOSIS
     Dosage: DAILY DOSE: 1000 IE
     Dates: start: 2011
  5. FAMPYRA [Concomitant]
     Active Substance: DALFAMPRIDINE
     Indication: GAIT DISTURBANCE
     Dates: start: 20111013
  6. METFORMIN [Concomitant]
     Active Substance: METFORMIN HYDROCHLORIDE
     Indication: DIABETES MELLITUS
  7. MILGAMMA [Concomitant]
     Active Substance: VITAMIN B
  8. METFORMIN [Concomitant]
     Active Substance: METFORMIN HYDROCHLORIDE
  9. BACLOFEN. [Concomitant]
     Active Substance: BACLOFEN
     Indication: MUSCLE SPASTICITY
     Dates: start: 2007
  10. EMSELEX /01760401/ [Concomitant]
     Active Substance: DARIFENACIN HYDROBROMIDE
  11. VIGANTOLETTEN [Concomitant]
     Active Substance: CHOLECALCIFEROL
  12. GABAPENTIN. [Concomitant]
     Active Substance: GABAPENTIN
     Indication: NEURALGIA
  13. GABAPENTIN. [Concomitant]
     Active Substance: GABAPENTIN
  14. SIMVASTATIN. [Concomitant]
     Active Substance: SIMVASTATIN
  15. BELOC ZOK (METOPROLOL SUCCINATE) [Concomitant]
     Active Substance: METOPROLOL SUCCINATE
     Indication: HYPERTENSION
     Dates: start: 2000
  16. EMSELEX /01760401/ [Concomitant]
     Active Substance: DARIFENACIN HYDROBROMIDE
     Indication: INCONTINENCE
     Dates: start: 2013
  17. TYSABRI [Suspect]
     Active Substance: NATALIZUMAB
     Route: 042
     Dates: start: 20150801
  18. MILGAMMA [Concomitant]
     Active Substance: VITAMIN B
     Indication: HYPOVITAMINOSIS
     Dates: start: 2011

REACTIONS (2)
  - Urinary tract infection [Recovered/Resolved]
  - Acute kidney injury [Recovered/Resolved with Sequelae]

NARRATIVE: CASE EVENT DATE: 20150719
